FAERS Safety Report 11087017 (Version 1)
Quarter: 2015Q2

REPORT INFORMATION
  Report Type: Spontaneous
  Country: US (occurrence: None)
  Receive Date: 20150501
  Receipt Date: 20150501
  Transmission Date: 20150821
  Serious: Yes (Hospitalization, Disabling)
  Sender: FDA-Public Use
  Company Number: None

PATIENT
  Age: 54 Year
  Sex: Female
  Weight: 77.11 kg

DRUGS (11)
  1. TAMOXIFEN [Concomitant]
     Active Substance: TAMOXIFEN
  2. NOLVADEX [Suspect]
     Active Substance: TAMOXIFEN CITRATE
     Indication: BREAST CANCER RECURRENT
     Dosage: YES, ONCE DAILY, TAKEN BY MOUTH
     Route: 048
  3. LISINOPRIL. [Concomitant]
     Active Substance: LISINOPRIL
  4. OXYBUTININE [Concomitant]
     Active Substance: OXYBUTYNIN\OXYBUTYNIN CHLORIDE
  5. LEXAPRO [Concomitant]
     Active Substance: ESCITALOPRAM OXALATE
  6. GABAPENTIN. [Concomitant]
     Active Substance: GABAPENTIN
  7. PROTONIX [Concomitant]
     Active Substance: PANTOPRAZOLE SODIUM
  8. NOLVADEX [Suspect]
     Active Substance: TAMOXIFEN CITRATE
     Indication: PROPHYLAXIS
     Dosage: YES, ONCE DAILY, TAKEN BY MOUTH
     Route: 048
  9. ACYCLOVIR. [Concomitant]
     Active Substance: ACYCLOVIR
  10. CARAFATE [Concomitant]
     Active Substance: SUCRALFATE
  11. LOPID [Concomitant]
     Active Substance: GEMFIBROZIL

REACTIONS (2)
  - Chest pain [None]
  - Pancreatitis [None]

NARRATIVE: CASE EVENT DATE: 20150119
